FAERS Safety Report 9114248 (Version 1)
Quarter: 2013Q1

REPORT INFORMATION
  Report Type: Spontaneous
  Country: US (occurrence: US)
  Receive Date: 20130208
  Receipt Date: 20130208
  Transmission Date: 20140127
  Serious: Yes (Other)
  Sender: FDA-Public Use
  Company Number: CHPA2013US002203

PATIENT
  Age: 62 Year
  Sex: Female

DRUGS (2)
  1. EXCEDRIN EXTRA STRENGTH [Suspect]
     Dosage: UNK
     Route: 048
     Dates: start: 1960, end: 201110
  2. TYLENOL [Concomitant]

REACTIONS (7)
  - Cerebrovascular accident [Unknown]
  - Pain [Unknown]
  - Diabetes mellitus [Unknown]
  - Blood cholesterol increased [Unknown]
  - Headache [Unknown]
  - Pain in extremity [Unknown]
  - Incorrect dose administered [Unknown]
